FAERS Safety Report 22320999 (Version 1)
Quarter: 2023Q2

REPORT INFORMATION
  Report Type: Spontaneous
  Country: US (occurrence: US)
  Receive Date: 20230515
  Receipt Date: 20230515
  Transmission Date: 20230722
  Serious: No
  Sender: FDA-Public Use
  Company Number: US-BEH-2023158507

PATIENT
  Sex: Female
  Weight: 74.83 kg

DRUGS (1)
  1. HIZENTRA [Suspect]
     Active Substance: HUMAN IMMUNOGLOBULIN G
     Indication: Selective IgG subclass deficiency
     Dosage: 20 GRAM, QOW
     Route: 058
     Dates: start: 202111

REACTIONS (3)
  - Weight decreased [Unknown]
  - Irritable bowel syndrome [Unknown]
  - Weight fluctuation [Unknown]
